FAERS Safety Report 6518652-9 (Version None)
Quarter: 2009Q4

REPORT INFORMATION
  Report Type: 
  Country: None (occurrence: None)
  Receive Date: 20091228
  Receipt Date: 20091217
  Transmission Date: 20100525
  Serious: Yes (Death)
  Sender: FDA-Public Use
  Company Number: US-ROCHE-671864

PATIENT
  Sex: Female
  Weight: 51.7 kg

DRUGS (2)
  1. XELODA [Suspect]
     Indication: BILIARY CANCER METASTATIC
     Route: 048
     Dates: start: 20081028, end: 20090526
  2. GEMZAR [Concomitant]
     Dosage: START DATE REPORTED: 2009; DOSAGE REGIMEN REPORTED: 1000 MG Q WK X 3
     Route: 042
     Dates: end: 20090526

REACTIONS (1)
  - MALIGNANT NEOPLASM PROGRESSION [None]
